FAERS Safety Report 9062917 (Version 1)
Quarter: 2013Q1

REPORT INFORMATION
  Report Type: Report from Study
  Country: US (occurrence: US)
  Receive Date: 20130131
  Receipt Date: 20130131
  Transmission Date: 20140127
  Serious: No
  Sender: FDA-Public Use
  Company Number: US-ABBOTT-12P-163-1008406-00

PATIENT
  Age: 59 Year
  Sex: Female

DRUGS (7)
  1. HUMIRA [Suspect]
     Indication: PSORIASIS
     Dates: start: 20120724
  2. CELEBREX [Concomitant]
     Indication: ARTHRALGIA
  3. GLIMEPIRIDE [Concomitant]
     Indication: DIABETES MELLITUS
  4. QUINAPRIL [Concomitant]
     Indication: HYPERTENSION
  5. ANTIHISTAMINES [Concomitant]
     Indication: PRURITUS
  6. IBUPROFEN [Concomitant]
     Indication: PAIN
  7. POTASSIUM [Concomitant]
     Indication: MINERAL SUPPLEMENTATION
     Dosage: DAILY

REACTIONS (3)
  - Cough [Recovering/Resolving]
  - Nasopharyngitis [Recovering/Resolving]
  - Rhinorrhoea [Recovering/Resolving]
